FAERS Safety Report 8234069-3 (Version None)
Quarter: 2012Q1

REPORT INFORMATION
  Report Type: 
  Country: None (occurrence: None)
  Receive Date: 20120326
  Receipt Date: 20120326
  Transmission Date: 20120608
  Serious: No
  Sender: FDA-Public Use
  Company Number: None

PATIENT
  Age: 58 Year
  Sex: Female
  Weight: 97.522 kg

DRUGS (3)
  1. ARIMIDEX [Concomitant]
  2. SINGULAIR [Suspect]
  3. SINGULAIR [Suspect]
     Indication: CAPSULAR CONTRACTURE ASSOCIATED WITH BREAST IMPLANT
     Dosage: 10 MG
     Route: 048
     Dates: start: 20120106, end: 20120320

REACTIONS (2)
  - OFF LABEL USE [None]
  - NEUROPATHY PERIPHERAL [None]
